FAERS Safety Report 12390233 (Version 1)
Quarter: 2016Q2

REPORT INFORMATION
  Report Type: Spontaneous
  Country: US (occurrence: US)
  Receive Date: 20160520
  Receipt Date: 20160520
  Transmission Date: 20160815
  Serious: No
  Sender: FDA-Public Use
  Company Number: US-ASTRAZENECA-2016SE38208

PATIENT
  Sex: Male

DRUGS (2)
  1. SEROQUEL [Suspect]
     Active Substance: QUETIAPINE FUMARATE
     Route: 048
     Dates: end: 20160405
  2. SEROQUEL [Suspect]
     Active Substance: QUETIAPINE FUMARATE
     Route: 048
     Dates: start: 20160405

REACTIONS (5)
  - Blood pressure increased [Unknown]
  - Feeling abnormal [Unknown]
  - Fatigue [Unknown]
  - Chest pain [Unknown]
  - Hallucination, visual [Unknown]

NARRATIVE: CASE EVENT DATE: 20160405
